FAERS Safety Report 5114903-6 (Version None)
Quarter: 2006Q3

REPORT INFORMATION
  Report Type: 
  Country: None (occurrence: None)
  Receive Date: 20060921
  Receipt Date: 20060829
  Transmission Date: 20061208
  Serious: Yes (Hospitalization)
  Sender: FDA-Public Use
  Company Number: 2006RR-03682

PATIENT
  Age: 69 Year

DRUGS (4)
  1. FLUOXETINE [Suspect]
     Indication: DEPRESSION
     Dosage: SINGLE, ORAL
     Route: 048
     Dates: start: 20060410, end: 20060415
  2. MOVICAL [Concomitant]
  3. SIMVASTATIN FILM COATED TABLET (SIMVASTATIN) TABLET [Concomitant]
  4. XALACOM [Concomitant]

REACTIONS (3)
  - BLOOD CREATINE PHOSPHOKINASE INCREASED [None]
  - GENERAL PHYSICAL HEALTH DETERIORATION [None]
  - VOMITING [None]
